FAERS Safety Report 6085683-5 (Version None)
Quarter: 2009Q1

REPORT INFORMATION
  Report Type: 
  Country: None (occurrence: None)
  Receive Date: 20090217
  Receipt Date: 20090217
  Transmission Date: 20090719
  Serious: Yes (Other)
  Sender: FDA-Public Use
  Company Number: None

PATIENT
  Age: 25 Year
  Sex: Female
  Weight: 46.2669 kg

DRUGS (3)
  1. DEXTROAMPHETAMINE SULFATE [Suspect]
     Indication: NARCOLEPSY
     Dosage: 20 MG B.I.D. PO
     Route: 048
  2. ADDERALL XR- EXTENDED-RELEASE MIXED AMPHETAMINE SALTS [Concomitant]
  3. VALIUM [Concomitant]

REACTIONS (5)
  - DRUG INEFFECTIVE [None]
  - NARCOLEPSY [None]
  - NERVOUS SYSTEM DISORDER [None]
  - PRODUCT QUALITY ISSUE [None]
  - SLEEP DISORDER [None]
